FAERS Safety Report 17227445 (Version 3)
Quarter: 2020Q3

REPORT INFORMATION
  Report Type: Report from Study
  Country: US (occurrence: US)
  Receive Date: 20200103
  Receipt Date: 20200703
  Transmission Date: 20201102
  Serious: Yes (Life-Threatening)
  Sender: FDA-Public Use
  Company Number: US-ROCHE-2349491

PATIENT
  Age: 33 Year
  Sex: Female
  Weight: 131.66 kg

DRUGS (17)
  1. TYLENOL [Concomitant]
     Active Substance: ACETAMINOPHEN
     Indication: HEADACHE
  2. IBUPROFEN. [Concomitant]
     Active Substance: IBUPROFEN
     Indication: HEADACHE
  3. OCREVUS [Suspect]
     Active Substance: OCRELIZUMAB
     Route: 042
     Dates: start: 201712
  4. LEXAPRO [Concomitant]
     Active Substance: ESCITALOPRAM OXALATE
     Indication: DEPRESSION
     Dosage: ONE A DAY
     Route: 048
     Dates: start: 201210
  5. JUNEL FE 1/20 [Concomitant]
     Active Substance: ETHINYL ESTRADIOL\NORETHINDRONE ACETATE
     Indication: CONTRACEPTION
     Route: 048
     Dates: start: 2003
  6. OCREVUS [Suspect]
     Active Substance: OCRELIZUMAB
     Route: 042
     Dates: start: 20191218
  7. JUNEL FE 1/20 [Concomitant]
     Active Substance: ETHINYL ESTRADIOL\NORETHINDRONE ACETATE
     Route: 048
  8. ZYRTEC [Concomitant]
     Active Substance: CETIRIZINE HYDROCHLORIDE
     Indication: SEASONAL ALLERGY
  9. ZYRTEC [Concomitant]
     Active Substance: CETIRIZINE HYDROCHLORIDE
     Indication: HYPERSENSITIVITY
     Dosage: ONGOING:YES. AS REQUIRED
     Route: 048
  10. BETAMETHASONE DIPROPIONATE AUGMENTED [Concomitant]
     Active Substance: BETAMETHASONE DIPROPIONATE
     Indication: PSORIASIS
     Dosage: ONGOING YES, APPLIES UP TO 2 TIMES
     Route: 061
  11. OCREVUS [Suspect]
     Active Substance: OCRELIZUMAB
     Dosage: 4TH INFUSION
     Route: 042
     Dates: start: 20190619
  12. ZANTAC [Concomitant]
     Active Substance: RANITIDINE HYDROCHLORIDE
  13. LEXAPRO [Concomitant]
     Active Substance: ESCITALOPRAM OXALATE
     Indication: ANXIETY
     Dosage: STARTED BETWEEN 2012 AND 2015
     Route: 048
  14. OCREVUS [Suspect]
     Active Substance: OCRELIZUMAB
     Indication: RELAPSING-REMITTING MULTIPLE SCLEROSIS
     Route: 042
     Dates: start: 20170612
  15. OCREVUS [Suspect]
     Active Substance: OCRELIZUMAB
     Dosage: ONGOING; YES
     Route: 042
     Dates: start: 201812
  16. CLARITIN [Concomitant]
     Active Substance: LORATADINE
     Indication: SEASONAL ALLERGY
     Dosage: ONGOING:YES AS REQUIRED
     Route: 048
  17. EPINEPHRINE. [Concomitant]
     Active Substance: EPINEPHRINE
     Indication: FOOD ALLERGY

REACTIONS (16)
  - Tongue pruritus [Recovered/Resolved]
  - Lethargy [Recovered/Resolved]
  - Insomnia [Recovered/Resolved]
  - Off label use [Unknown]
  - Swollen tongue [Recovered/Resolved]
  - Blood pressure increased [Recovered/Resolved]
  - Fatigue [Recovered/Resolved]
  - Urticaria [Recovered/Resolved]
  - Rash macular [Recovered/Resolved]
  - Lip pruritus [Recovered/Resolved]
  - Dyspnoea [Recovered/Resolved]
  - Oropharyngeal spasm [Recovered/Resolved]
  - Pharyngeal swelling [Recovered/Resolved]
  - Pain in extremity [Recovered/Resolved]
  - Infusion site pain [Recovered/Resolved]
  - Intentional product misuse [Unknown]

NARRATIVE: CASE EVENT DATE: 20190619
